FAERS Safety Report 8169872-1 (Version None)
Quarter: 2012Q1

REPORT INFORMATION
  Report Type: 
  Country: None (occurrence: None)
  Receive Date: 20120104
  Receipt Date: 20111019
  Transmission Date: 20120608
  Serious: No
  Sender: FDA-Public Use
  Company Number: 2011HGS-002659

PATIENT
  Age: 64 Year
  Sex: Female

DRUGS (14)
  1. SYNTHROID (LEVOTHYROXINE SODIUM) (LEVOTHYROXINE SODIUM) [Concomitant]
  2. VITAMIN 3 (TOCOPHEROL) (TOCOPHEROL) [Concomitant]
  3. CQ10 (UBIQUINONE) [Concomitant]
  4. KEPPRA [Concomitant]
  5. VITAMIN D (ERGOCALCIFEROL) (ERGOCALCIFEROL) [Concomitant]
  6. PERCOCET (OXYCOCET) (PARACETAMOL, OXYCODONE HYDROCHLORIDE) [Concomitant]
  7. METHOTREXATE [Concomitant]
  8. DIGOXIN [Concomitant]
  9. NEXIUM [Concomitant]
  10. COUMADINE (WARFARIN SODIUM) (WARFARIN SODIUM) [Concomitant]
  11. FOLIC ACID [Concomitant]
  12. BENLYSTA [Suspect]
     Indication: SYSTEMIC LUPUS ERYTHEMATOSUS
     Dosage: 1 IN 28 D, INTRAVENOUS DRIP
     Route: 041
     Dates: start: 20110809
  13. PREDNISONE [Concomitant]
  14. CRESTOR [Concomitant]

REACTIONS (3)
  - URINARY TRACT INFECTION [None]
  - BLINDNESS UNILATERAL [None]
  - WHITE BLOOD CELL COUNT INCREASED [None]
